FAERS Safety Report 15401715 (Version 1)
Quarter: 2018Q3

REPORT INFORMATION
  Report Type: Spontaneous
  Country: US (occurrence: US)
  Receive Date: 20180919
  Receipt Date: 20180919
  Transmission Date: 20181010
  Serious: No
  Sender: FDA-Public Use
  Company Number: US-PFIZER INC-2018377072

PATIENT
  Sex: Female

DRUGS (1)
  1. DEPO?ESTRADIOL [Suspect]
     Active Substance: ESTRADIOL CYPIONATE

REACTIONS (4)
  - Intentional product misuse [Unknown]
  - Tachyphrenia [Unknown]
  - Affective disorder [Unknown]
  - Migraine [Unknown]
